FAERS Safety Report 4921313-0 (Version None)
Quarter: 2006Q1

REPORT INFORMATION
  Report Type: 
  Country: None (occurrence: None)
  Receive Date: 20060221
  Receipt Date: 20060213
  Transmission Date: 20060701
  Serious: Yes (Hospitalization)
  Sender: FDA-Public Use
  Company Number: 2006021925

PATIENT
  Age: 84 Year
  Sex: Female
  Weight: 71 kg

DRUGS (4)
  1. QUINAPRIL HCL + HYDROCHLOROTHIAZIDE [Suspect]
     Indication: ILL-DEFINED DISORDER
     Dosage: 1 DF (DAILY), ORAL
     Route: 048
     Dates: end: 20060107
  2. ASPIRIN [Concomitant]
  3. AMLODIPINE [Concomitant]
  4. COLHIMAX (COLCHICINE, DICYCLOVERINE  HYDROCHLORIDE) [Concomitant]

REACTIONS (6)
  - CHONDROCALCINOSIS [None]
  - CONDITION AGGRAVATED [None]
  - CONFUSIONAL STATE [None]
  - HYPOCHLORAEMIA [None]
  - HYPONATRAEMIA [None]
  - MUSCLE DISORDER [None]
